FAERS Safety Report 6391497-9 (Version None)
Quarter: 2009Q4

REPORT INFORMATION
  Report Type: 
  Country: None (occurrence: None)
  Receive Date: 20091007
  Receipt Date: 20091001
  Transmission Date: 20100525
  Serious: Yes (Other)
  Sender: FDA-Public Use
  Company Number: JP-JNJFOC-20090904330

PATIENT
  Sex: Female

DRUGS (3)
  1. DUROTEP MT [Suspect]
     Route: 062
  2. DUROTEP MT [Suspect]
     Indication: CANCER PAIN
     Route: 062
  3. OXYCONTIN [Suspect]
     Indication: CANCER PAIN
     Route: 048

REACTIONS (6)
  - COMA [None]
  - CONSTIPATION [None]
  - DIZZINESS [None]
  - DRUG PRESCRIBING ERROR [None]
  - FALL [None]
  - WRONG TECHNIQUE IN DRUG USAGE PROCESS [None]
